FAERS Safety Report 9955559 (Version 2)
Quarter: 2014Q1

REPORT INFORMATION
  Report Type: Report from Study
  Country: US (occurrence: US)
  Receive Date: 20140304
  Receipt Date: 20140304
  Transmission Date: 20141002
  Serious: No
  Sender: FDA-Public Use
  Company Number: US-ABBVIE-13P-163-1064076-00

PATIENT
  Age: 59 Year
  Sex: Female
  Weight: 97.61 kg

DRUGS (20)
  1. HUMIRA [Suspect]
     Indication: PSORIASIS
     Dosage: ONE DOSE
     Route: 058
     Dates: start: 201302, end: 201302
  2. HUMIRA [Suspect]
     Dosage: ONE WEEK AFTER 80 MG DOSE
     Dates: start: 201304
  3. HUMIRA [Suspect]
     Dates: start: 20130421
  4. LIPITOR [Concomitant]
     Indication: BLOOD CHOLESTEROL INCREASED
  5. CARVEDILOL [Concomitant]
     Indication: CORONARY ARTERY BYPASS
  6. NOVOLOG [Concomitant]
     Indication: DIABETES MELLITUS
     Dosage: SLIDING SCALE
  7. NOVOLIN [Concomitant]
     Indication: DIABETES MELLITUS
  8. LEVOTHYROXINE [Concomitant]
     Indication: HYPOTHYROIDISM
  9. METFORMIN [Concomitant]
     Indication: DIABETES MELLITUS
  10. NIASPAN [Concomitant]
     Indication: BLOOD CHOLESTEROL
     Dosage: AT BEDTIME
  11. QUINAPRIL [Concomitant]
     Indication: PRODUCT USED FOR UNKNOWN INDICATION
  12. SYNTHROID [Concomitant]
     Indication: PRODUCT USED FOR UNKNOWN INDICATION
  13. INSULIN [Concomitant]
     Indication: PRODUCT USED FOR UNKNOWN INDICATION
  14. HYGROTON [Concomitant]
     Indication: PRODUCT USED FOR UNKNOWN INDICATION
  15. CLOBETASOL PROPIONATE [Concomitant]
     Indication: PRODUCT USED FOR UNKNOWN INDICATION
  16. NIACIN [Concomitant]
  17. FISH OIL [Concomitant]
  18. ASPIRIN [Concomitant]
  19. MUTLI-DAILY VITAMIN [Concomitant]
  20. LEVOQUIN [Concomitant]

REACTIONS (12)
  - Erythema [Recovered/Resolved]
  - Pyrexia [Recovered/Resolved]
  - Cellulitis [Not Recovered/Not Resolved]
  - Cellulitis [Recovering/Resolving]
  - Oedema peripheral [Recovering/Resolving]
  - Cellulitis [Unknown]
  - Arthralgia [Recovered/Resolved]
  - Pyrexia [Recovered/Resolved]
  - Chills [Recovered/Resolved]
  - Cellulitis [Recovered/Resolved]
  - Rash [Recovered/Resolved]
  - Pruritus [Recovered/Resolved]
